FAERS Safety Report 17196106 (Version 1)
Quarter: 2019Q4

REPORT INFORMATION
  Report Type: Report from Study
  Country: US (occurrence: US)
  Receive Date: 20191224
  Receipt Date: 20191224
  Transmission Date: 20200122
  Serious: Yes (Other)
  Sender: FDA-Public Use
  Company Number: US-UCBSA-2019048219

PATIENT
  Age: 52 Year
  Sex: Female

DRUGS (1)
  1. CERTOLIZUMAB PEGOL [Suspect]
     Active Substance: CERTOLIZUMAB PEGOL
     Indication: RHEUMATOID ARTHRITIS
     Dosage: 400 MILLIGRAM, EV 2 WEEKS(QOW)
     Dates: start: 20191109, end: 20191202

REACTIONS (7)
  - Influenza like illness [Not Recovered/Not Resolved]
  - Oedema peripheral [Not Recovered/Not Resolved]
  - Injection site discolouration [Not Recovered/Not Resolved]
  - Melanocytic naevus [Not Recovered/Not Resolved]
  - Arthralgia [Not Recovered/Not Resolved]
  - Injection site reaction [Recovering/Resolving]
  - Drug ineffective [Unknown]

NARRATIVE: CASE EVENT DATE: 2019
